FAERS Safety Report 4933906-5 (Version None)
Quarter: 2006Q1

REPORT INFORMATION
  Report Type: 
  Country: None (occurrence: None)
  Receive Date: 20060301
  Receipt Date: 20060222
  Transmission Date: 20060701
  Serious: Yes (Other)
  Sender: FDA-Public Use
  Company Number: 2006-032DP

PATIENT
  Age: 12 Year
  Sex: Male

DRUGS (1)
  1. ETHOSUXIMIDE [Suspect]
     Indication: PETIT MAL EPILEPSY
     Dosage: 30MG/KG/DAY

REACTIONS (3)
  - LOCAL SWELLING [None]
  - PYREXIA [None]
  - WEIGHT DECREASED [None]
